FAERS Safety Report 8525198-5 (Version None)
Quarter: 2012Q3

REPORT INFORMATION
  Report Type: 
  Country: None (occurrence: None)
  Receive Date: 20120720
  Receipt Date: 20120713
  Transmission Date: 20120928
  Serious: Yes (Other)
  Sender: FDA-Public Use
  Company Number: PHHY2011MX102472

PATIENT
  Sex: Female

DRUGS (1)
  1. ZOLEDRONOC ACID [Suspect]
     Indication: OSTEOPOROSIS
     Dosage: 5MG/100 ML PER YEAR
     Route: 042
     Dates: start: 20111101

REACTIONS (10)
  - DECREASED INTEREST [None]
  - PERIPHERAL COLDNESS [None]
  - PAIN [None]
  - COLITIS [None]
  - GASTRITIS [None]
  - OEDEMA PERIPHERAL [None]
  - ARTHRALGIA [None]
  - MALAISE [None]
  - PAIN IN EXTREMITY [None]
  - HEADACHE [None]
